FAERS Safety Report 17472230 (Version 1)
Quarter: 2020Q1

REPORT INFORMATION
  Report Type: Spontaneous
  Country: FR (occurrence: FR)
  Receive Date: 20200228
  Receipt Date: 20200228
  Transmission Date: 20200409
  Serious: Yes (Other)
  Sender: FDA-Public Use
  Company Number: FR-ACCORD-173796

PATIENT
  Age: 56 Year
  Sex: Male
  Weight: 86 kg

DRUGS (11)
  1. ITRACONAZOLE. [Suspect]
     Active Substance: ITRACONAZOLE
     Indication: BRONCHOPULMONARY ASPERGILLOSIS
     Route: 048
     Dates: start: 20200114, end: 20200204
  2. BRICANYL [Concomitant]
     Active Substance: TERBUTALINE SULFATE
  3. LEVOTHYROX [Concomitant]
     Active Substance: LEVOTHYROXINE
  4. INEXIUM [Concomitant]
     Active Substance: ESOMEPRAZOLE
  5. RILMENIDINE/RILMENIDINE PHOSPHATE [Concomitant]
     Active Substance: RILMENIDINE
  6. SPIRIVA [Concomitant]
     Active Substance: TIOTROPIUM BROMIDE MONOHYDRATE
  7. ZOPICLONE [Concomitant]
     Active Substance: ZOPICLONE
  8. BUDESONIDE/FORMOTEROL FUMARATE [Concomitant]
     Active Substance: BUDESONIDE\FORMOTEROL FUMARATE
  9. ATARAX [Concomitant]
     Active Substance: HYDROXYZINE HYDROCHLORIDE
  10. ATROVENT [Concomitant]
     Active Substance: IPRATROPIUM BROMIDE
  11. FENOFIBRATE. [Concomitant]
     Active Substance: FENOFIBRATE

REACTIONS (1)
  - Oedema peripheral [Not Recovered/Not Resolved]

NARRATIVE: CASE EVENT DATE: 202001
